FAERS Safety Report 5473945-1 (Version None)
Quarter: 2007Q4

REPORT INFORMATION
  Report Type: 
  Country: None (occurrence: None)
  Receive Date: 20071001
  Receipt Date: 20070919
  Transmission Date: 20080405
  Serious: Yes (Other)
  Sender: FDA-Public Use
  Company Number: US-PFIZER INC-2007080063

PATIENT
  Sex: Female
  Weight: 79.4 kg

DRUGS (3)
  1. CHANTIX [Suspect]
     Indication: SMOKING CESSATION THERAPY
     Route: 048
  2. SPIRIVA [Concomitant]
  3. ORTHO EVRA [Concomitant]

REACTIONS (2)
  - METRORRHAGIA [None]
  - MUSCLE SPASMS [None]
